FAERS Safety Report 10688041 (Version 2)
Quarter: 2015Q1

REPORT INFORMATION
  Report Type: Spontaneous
  Country: US (occurrence: US)
  Receive Date: 20150102
  Receipt Date: 20150105
  Transmission Date: 20150720
  Serious: Yes (Other)
  Sender: FDA-Public Use
  Company Number: US-BAYER-2015-000173

PATIENT
  Age: 77 Year
  Sex: Female
  Weight: 59 kg

DRUGS (3)
  1. ALEVE [Suspect]
     Active Substance: NAPROXEN SODIUM
     Indication: ARTHRALGIA
     Dosage: 2 DF, DAILY
     Dates: start: 201411
  2. ALEVE [Suspect]
     Active Substance: NAPROXEN SODIUM
     Indication: NEUROPATHY PERIPHERAL
     Dosage: 2 DF, DAILY
     Route: 048
     Dates: start: 201410, end: 201411
  3. PRILOSEC [Concomitant]
     Active Substance: OMEPRAZOLE MAGNESIUM
     Dosage: UNK

REACTIONS (5)
  - Computerised tomogram abnormal [None]
  - Vaginal haemorrhage [Recovered/Resolved]
  - Incorrect drug administration duration [None]
  - Vaginal haemorrhage [Recovered/Resolved]
  - Blood pressure systolic increased [None]

NARRATIVE: CASE EVENT DATE: 201411
